FAERS Safety Report 4728700-4 (Version None)
Quarter: 2005Q3

REPORT INFORMATION
  Report Type: 
  Country: None (occurrence: None)
  Receive Date: 20050727
  Receipt Date: 20050711
  Transmission Date: 20060218
  Serious: Yes (Hospitalization, Disabling, Other)
  Sender: FDA-Public Use
  Company Number: WAES 0506USA02063

PATIENT
  Age: 72 Year
  Sex: Female
  Weight: 63.5036 kg

DRUGS (7)
  1. FOSAMAX [Suspect]
     Indication: OSTEOPOROSIS
     Dosage: 70 MG/WKY/PO
     Route: 048
     Dates: start: 20041130, end: 20050215
  2. TAB IBANDRONATE SODIUM 150 MG [Suspect]
     Indication: OSTEOPOROSIS
     Dosage: 150 MG/MTH/PO
     Route: 048
     Dates: start: 20050223, end: 20050423
  3. LISINOPRIL [Suspect]
     Dosage: 10 MG/DAILY/PO
     Route: 048
     Dates: start: 20040101, end: 20050607
  4. LISINOPRIL [Suspect]
     Dosage: 10 MG/DAILY/PO
     Route: 048
     Dates: start: 20050616
  5. IBUPROFEN [Suspect]
     Dosage: 800 TID MG/PRN
     Route: 048
     Dates: end: 20050601
  6. NORVASC [Concomitant]
  7. BUPRIOPION HYDROCHLORIDE [Concomitant]

REACTIONS (19)
  - ABDOMINAL PAIN [None]
  - ANOREXIA [None]
  - ASTHENIA [None]
  - BACK PAIN [None]
  - BLOOD PRESSURE SYSTOLIC INCREASED [None]
  - DIARRHOEA [None]
  - GOITRE [None]
  - HEPATITIS C ANTIBODY POSITIVE [None]
  - INFLUENZA [None]
  - LYMPHADENOPATHY [None]
  - MUSCLE STRAIN [None]
  - MUSCULOSKELETAL DISCOMFORT [None]
  - NAUSEA [None]
  - ORAL INTAKE REDUCED [None]
  - PROTEINURIA [None]
  - RENAL DISORDER [None]
  - RENAL FAILURE ACUTE [None]
  - VOMITING [None]
  - WEIGHT DECREASED [None]
